FAERS Safety Report 7907934-1 (Version None)
Quarter: 2011Q4

REPORT INFORMATION
  Report Type: 
  Country: None (occurrence: None)
  Receive Date: 20111110
  Receipt Date: 20111031
  Transmission Date: 20120403
  Serious: Yes (Congenital Anomaly)
  Sender: FDA-Public Use
  Company Number: GB-RB-033776-11

PATIENT
  Age: 24 Month
  Sex: Male

DRUGS (1)
  1. SUBUTEX [Suspect]
     Indication: DRUG DEPENDENCE
     Route: 064
     Dates: start: 20090101

REACTIONS (1)
  - DEVELOPMENTAL DELAY [None]
